FAERS Safety Report 13063595 (Version 2)
Quarter: 2017Q1

REPORT INFORMATION
  Report Type: Spontaneous
  Country: US (occurrence: US)
  Receive Date: 20161227
  Receipt Date: 20170110
  Transmission Date: 20170428
  Serious: Yes (Other)
  Sender: FDA-Public Use
  Company Number: US-ROCHE-1871468

PATIENT
  Age: 51 Year
  Sex: Male

DRUGS (3)
  1. KLONOPIN [Suspect]
     Active Substance: CLONAZEPAM
     Indication: ALCOHOL DETOXIFICATION
     Dosage: 1 TABLET BY MOUTH THREE TIMES DAILY
     Route: 048
     Dates: start: 2011
  2. KLONOPIN [Suspect]
     Active Substance: CLONAZEPAM
     Indication: ANXIETY
  3. KLONOPIN [Suspect]
     Active Substance: CLONAZEPAM
     Indication: SEIZURE

REACTIONS (10)
  - Feeding disorder [Recovering/Resolving]
  - Feeling abnormal [Recovering/Resolving]
  - Heart rate increased [Recovering/Resolving]
  - Dyskinesia [Recovering/Resolving]
  - Drug withdrawal syndrome [Recovering/Resolving]
  - Hyperhidrosis [Recovering/Resolving]
  - Discomfort [Recovering/Resolving]
  - Nausea [Recovering/Resolving]
  - Blood pressure increased [Recovering/Resolving]
  - Eating disorder [Recovering/Resolving]

NARRATIVE: CASE EVENT DATE: 20161212
